FAERS Safety Report 6694971-0 (Version None)
Quarter: 2010Q2

REPORT INFORMATION
  Report Type: 
  Country: None (occurrence: None)
  Receive Date: 20100423
  Receipt Date: 20100412
  Transmission Date: 20101027
  Serious: Yes (Hospitalization)
  Sender: FDA-Public Use
  Company Number: BR-MEDIMMUNE-MEDI-0011115

PATIENT
  Sex: Male
  Weight: 6.48 kg

DRUGS (1)
  1. SYNAGIS [Suspect]
     Indication: CARDIAC DISORDER

REACTIONS (5)
  - BRONCHITIS [None]
  - COUGH [None]
  - DYSPNOEA [None]
  - FATIGUE [None]
  - PNEUMONIA [None]
